FAERS Safety Report 4974037-8 (Version None)
Quarter: 2006Q1

REPORT INFORMATION
  Report Type: 
  Country: None (occurrence: None)
  Receive Date: 20060215
  Receipt Date: 20051109
  Transmission Date: 20060701
  Serious: No
  Sender: FDA-Public Use
  Company Number: US200511001088

PATIENT
  Age: 35 Year
  Sex: Male

DRUGS (4)
  1. CIALIS [Suspect]
     Dosage: 10 MG, ORAL
     Route: 048
     Dates: start: 20051021, end: 20051021
  2. ZOLOFT [Concomitant]
  3. NICOTINE GUM (NICOTINE) [Concomitant]
  4. MARIJUANA (CANNABIS) [Concomitant]

REACTIONS (1)
  - CHEST PAIN [None]
